FAERS Safety Report 8002922-1 (Version None)
Quarter: 2011Q4

REPORT INFORMATION
  Report Type: 
  Country: None (occurrence: None)
  Receive Date: 20111222
  Receipt Date: 20110325
  Transmission Date: 20120403
  Serious: No
  Sender: FDA-Public Use
  Company Number: US-GLAXOSMITHKLINE-A0920072A

PATIENT
  Age: 60 Year
  Sex: Male

DRUGS (3)
  1. NO CONCURRENT MEDICATION [Concomitant]
  2. COREG [Suspect]
     Indication: HYPERTENSION
     Dosage: 12.5MG TWICE PER DAY
     Route: 048
     Dates: start: 20080101
  3. AVODART [Suspect]
     Indication: BENIGN PROSTATIC HYPERPLASIA
     Dosage: 1TAB PER DAY
     Route: 048
     Dates: start: 20010101

REACTIONS (1)
  - ERECTILE DYSFUNCTION [None]
